FAERS Safety Report 23575229 (Version 2)
Quarter: 2024Q2

REPORT INFORMATION
  Report Type: Spontaneous
  Country: JP (occurrence: JP)
  Receive Date: 20240228
  Receipt Date: 20240401
  Transmission Date: 20240716
  Serious: Yes (Other)
  Sender: FDA-Public Use
  Company Number: JP-MYE-2024M1018115AA

PATIENT
  Age: 69 Year
  Sex: Male

DRUGS (7)
  1. PREDNISOLONE [Suspect]
     Active Substance: PREDNISOLONE
     Indication: Rheumatoid arthritis-associated interstitial lung disease
     Dosage: 5 MILLIGRAM, QD
     Route: 048
     Dates: start: 2017
  2. PREDNISOLONE [Suspect]
     Active Substance: PREDNISOLONE
     Dosage: DOSE INCREASED
     Route: 048
  3. ABATACEPT [Suspect]
     Active Substance: ABATACEPT
     Indication: Rheumatoid arthritis-associated interstitial lung disease
     Dosage: 750 MILLIGRAM, QW
     Route: 065
  4. ABATACEPT [Suspect]
     Active Substance: ABATACEPT
     Dosage: DOSE DECREASED
     Route: 065
  5. CYCLOPHOSPHAMIDE [Suspect]
     Active Substance: CYCLOPHOSPHAMIDE
     Indication: Rheumatoid arthritis-associated interstitial lung disease
     Dosage: RECEIVED A TOTAL OF 7 CYCLES OF?CYCLOPHOSPHAMIDE AT A TOTAL DOSE OF 5.6 G
     Route: 042
  6. METHOTREXATE [Suspect]
     Active Substance: METHOTREXATE
     Indication: Rheumatoid arthritis-associated interstitial lung disease
     Route: 065
     Dates: start: 2017
  7. TACROLIMUS [Concomitant]
     Active Substance: TACROLIMUS
     Indication: Rheumatoid arthritis-associated interstitial lung disease
     Route: 065

REACTIONS (1)
  - Drug ineffective [Unknown]
